FAERS Safety Report 18806910 (Version 1)
Quarter: 2021Q1

REPORT INFORMATION
  Report Type: Spontaneous
  Country: US (occurrence: US)
  Receive Date: 20210129
  Receipt Date: 20210129
  Transmission Date: 20210419
  Serious: Yes (Other)
  Sender: FDA-Public Use
  Company Number: US-STRIDES ARCOLAB LIMITED-2021SP001173

PATIENT
  Age: 68 Year
  Sex: Female

DRUGS (14)
  1. DILTIAZEM. [Interacting]
     Active Substance: DILTIAZEM
     Indication: TACHYCARDIA
     Dosage: 30 MILLIGRAM, EVERY 6 HR, SHORT?ACTING
     Route: 048
     Dates: start: 201901
  2. DILTIAZEM. [Interacting]
     Active Substance: DILTIAZEM
     Dosage: 240 MILLIGRAM, DAILY
     Route: 065
  3. TACROLIMUS. [Interacting]
     Active Substance: TACROLIMUS
     Dosage: UNK,FURTHER DECREASING THE TACROLIMUS DOSE
     Route: 065
     Dates: start: 2019
  4. TACROLIMUS. [Suspect]
     Active Substance: TACROLIMUS
     Indication: LUNG TRANSPLANT
     Dosage: UNK, EVERY MORNING, CAPSULE
     Route: 048
     Dates: start: 2018
  5. TACROLIMUS. [Interacting]
     Active Substance: TACROLIMUS
     Dosage: 0.5 MILLIGRAM, BID
  6. PREDNISOLONE. [Suspect]
     Active Substance: PREDNISOLONE
     Indication: LUNG TRANSPLANT
     Dosage: UNK
     Route: 065
     Dates: start: 2018
  7. METOPROLOL TARTRATE. [Concomitant]
     Active Substance: METOPROLOL TARTRATE
     Indication: HEART RATE
  8. TACROLIMUS. [Interacting]
     Active Substance: TACROLIMUS
     Dosage: UNK, DOSE REDUCTIONS
     Route: 065
     Dates: start: 2019
  9. MYCOPHENOLATE MOFETIL. [Suspect]
     Active Substance: MYCOPHENOLATE MOFETIL
     Indication: LUNG TRANSPLANT
     Dosage: UNK
     Route: 065
     Dates: start: 2018
  10. TACROLIMUS. [Interacting]
     Active Substance: TACROLIMUS
     Dosage: UNK, ANOTHER DOSE REDUCTION
     Route: 065
     Dates: start: 2019
  11. METOPROLOL TARTRATE. [Concomitant]
     Active Substance: METOPROLOL TARTRATE
     Indication: HYPERTENSION
     Dosage: UNK
     Route: 065
     Dates: start: 2018, end: 201911
  12. DILTIAZEM. [Interacting]
     Active Substance: DILTIAZEM
     Dosage: 300 MILLIGRAM, DAILY CAPSULES LONG?ACTING
     Route: 048
  13. FLUCONAZOLE. [Interacting]
     Active Substance: FLUCONAZOLE
     Indication: CANDIDA OSTEOMYELITIS
     Dosage: 400 MILLIGRAM DAILY
     Route: 065
     Dates: start: 2019
  14. METOPROLOL TARTRATE. [Concomitant]
     Active Substance: METOPROLOL TARTRATE
     Indication: TACHYCARDIA
     Dosage: UNK
     Route: 065
     Dates: start: 2019

REACTIONS (6)
  - Tachycardia [Unknown]
  - Hypomagnesaemia [Unknown]
  - Candida osteomyelitis [Unknown]
  - Drug interaction [Unknown]
  - Bradykinesia [Unknown]
  - Off label use [Unknown]

NARRATIVE: CASE EVENT DATE: 2019
